FAERS Safety Report 4659371-3 (Version None)
Quarter: 2005Q2

REPORT INFORMATION
  Report Type: 
  Country: None (occurrence: None)
  Receive Date: 20050510
  Receipt Date: 20050427
  Transmission Date: 20051028
  Serious: Yes (Hospitalization)
  Sender: FDA-Public Use
  Company Number: 2004234027DE

PATIENT
  Age: 76 Year
  Sex: Female
  Weight: 59 kg

DRUGS (9)
  1. AROMASIN [Suspect]
     Indication: BREAST CANCER
     Dosage: 25 MG ORAL
     Route: 048
     Dates: start: 20021004
  2. BISOPROLOL          (BISOPROLOL) [Concomitant]
  3. ENALAPRIL MALEATE [Concomitant]
  4. METFORMIN HCL [Concomitant]
  5. XIPAMIDE (XIPAMIDE) [Concomitant]
  6. THIOCTIC ACID (THIOCTIC ACID) [Concomitant]
  7. FOLIC ACID [Concomitant]
  8. LISINOPRIL [Concomitant]
  9. ASPIRIN [Concomitant]

REACTIONS (4)
  - HAEMATOMA INFECTION [None]
  - ISCHAEMIC STROKE [None]
  - PARTIAL SEIZURES [None]
  - WOUND [None]
